FAERS Safety Report 4541295-3 (Version None)
Quarter: 2004Q4

REPORT INFORMATION
  Report Type: 
  Country: None (occurrence: None)
  Receive Date: 20041228
  Receipt Date: 20041221
  Transmission Date: 20050328
  Serious: Yes (Other)
  Sender: FDA-Public Use
  Company Number: None

PATIENT
  Sex: Male

DRUGS (1)
  1. HIBICLENS [Suspect]
     Indication: LOCAL ANTIBACTERIAL THERAPY
     Dosage: 4 % CHG CUTANEOUS
     Route: 003
     Dates: start: 20041203

REACTIONS (2)
  - ACCIDENTAL EXPOSURE [None]
  - EYE IRRITATION [None]
